FAERS Safety Report 19424926 (Version 4)
Quarter: 2021Q3

REPORT INFORMATION
  Report Type: Report from Study
  Country: US (occurrence: US)
  Receive Date: 20210616
  Receipt Date: 20210903
  Transmission Date: 20211014
  Serious: No
  Sender: FDA-Public Use
  Company Number: NVSC2021US135682

PATIENT
  Age: 75 Year
  Sex: Female

DRUGS (1)
  1. ENTRESTO [Suspect]
     Active Substance: SACUBITRIL\VALSARTAN
     Indication: CARDIAC FAILURE
     Dosage: 1 DF, BID, (24/26MG)
     Route: 065
     Dates: start: 20210601

REACTIONS (7)
  - Ageusia [Not Recovered/Not Resolved]
  - Chest pain [Unknown]
  - Asthenia [Unknown]
  - Fatigue [Not Recovered/Not Resolved]
  - COVID-19 [Recovering/Resolving]
  - Nasopharyngitis [Recovering/Resolving]
  - Anosmia [Not Recovered/Not Resolved]

NARRATIVE: CASE EVENT DATE: 20210601
